FAERS Safety Report 21766955 (Version 1)
Quarter: 2022Q4

REPORT INFORMATION
  Report Type: Spontaneous
  Country: CA (occurrence: CA)
  Receive Date: 20221222
  Receipt Date: 20221222
  Transmission Date: 20230113
  Serious: No
  Sender: FDA-Public Use
  Company Number: CA-PFIZER INC-202201383948

PATIENT
  Age: 78 Year
  Sex: Male

DRUGS (1)
  1. PAXLOVID [Suspect]
     Active Substance: NIRMATRELVIR\RITONAVIR
     Indication: COVID-19 treatment
     Dosage: 2 EVERY 1 DAYS
     Route: 048

REACTIONS (3)
  - Dysuria [Recovered/Resolved]
  - Urine flow decreased [Recovered/Resolved]
  - Incorrect product administration duration [Unknown]
